FAERS Safety Report 5394939-0 (Version None)
Quarter: 2007Q3

REPORT INFORMATION
  Report Type: 
  Country: None (occurrence: None)
  Receive Date: 20070724
  Receipt Date: 20070515
  Transmission Date: 20080115
  Serious: Yes (Other)
  Sender: FDA-Public Use
  Company Number: GB-JNJFOC-20070704309

PATIENT
  Sex: Male
  Weight: 110 kg

DRUGS (10)
  1. REMICADE [Suspect]
     Indication: DRUG USE FOR UNKNOWN INDICATION
     Route: 042
  2. ACETAMINOPHEN [Suspect]
     Indication: DRUG USE FOR UNKNOWN INDICATION
     Dosage: UNSPECIFIED DOSE OVER 5-6 DAYS
     Route: 048
  3. ACETAMINOPHEN W/ CODEINE [Suspect]
     Indication: DRUG USE FOR UNKNOWN INDICATION
     Dosage: UNSPECIFIED DOSE OVER 5-6 DAYS
     Route: 048
  4. ASACOL [Concomitant]
  5. AZATHIOPRINE [Concomitant]
  6. BUSCOPAN [Concomitant]
  7. CIPROFLOXACIN [Concomitant]
  8. FLUOXETINE [Concomitant]
  9. LANSOPRAZOLE [Concomitant]
  10. MILPAR [Concomitant]

REACTIONS (2)
  - GAMMA-GLUTAMYLTRANSFERASE INCREASED [None]
  - MULTIPLE DRUG OVERDOSE [None]
